FAERS Safety Report 5380769-2 (Version None)
Quarter: 2007Q3

REPORT INFORMATION
  Report Type: 
  Country: None (occurrence: None)
  Receive Date: 20070706
  Receipt Date: 20070703
  Transmission Date: 20080115
  Serious: Yes (Hospitalization)
  Sender: FDA-Public Use
  Company Number: A0661956A

PATIENT
  Sex: Male

DRUGS (1)
  1. LAMICTAL [Suspect]
     Indication: DRUG USE FOR UNKNOWN INDICATION
     Route: 065

REACTIONS (8)
  - ANXIETY [None]
  - DECREASED APPETITE [None]
  - FATIGUE [None]
  - FEELING HOT [None]
  - ILL-DEFINED DISORDER [None]
  - MOOD ALTERED [None]
  - STRESS [None]
  - VOMITING [None]
